FAERS Safety Report 25516120 (Version 1)
Quarter: 2025Q3

REPORT INFORMATION
  Report Type: Spontaneous
  Country: US (occurrence: US)
  Receive Date: 20250704
  Receipt Date: 20250704
  Transmission Date: 20251021
  Serious: No
  Sender: RADIUS PHARM
  Company Number: US-RADIUS HEALTH INC.-2025US001481

PATIENT
  Sex: Female

DRUGS (1)
  1. TYMLOS [Suspect]
     Active Substance: ABALOPARATIDE
     Indication: Senile osteoporosis
     Route: 058

REACTIONS (8)
  - Constipation [Recovering/Resolving]
  - Headache [Recovered/Resolved]
  - Sciatica [Unknown]
  - Contusion [Unknown]
  - Peripheral swelling [Unknown]
  - Injection site bruising [Unknown]
  - Intentional dose omission [Unknown]
  - Hypoaesthesia [Unknown]
